FAERS Safety Report 4742680-7 (Version None)
Quarter: 2005Q3

REPORT INFORMATION
  Report Type: 
  Country: None (occurrence: None)
  Receive Date: 20050811
  Receipt Date: 20050126
  Transmission Date: 20060218
  Serious: Yes (Death, Hospitalization, Other)
  Sender: FDA-Public Use
  Company Number: JP-BRISTOL-MYERS SQUIBB COMPANY-12860706

PATIENT
  Age: 19 Year
  Sex: Male

DRUGS (3)
  1. IFOMIDE [Suspect]
     Indication: LUNG CANCER METASTATIC
     Route: 041
     Dates: start: 19971007, end: 19971010
  2. PARAPLATIN [Suspect]
     Indication: LUNG CANCER METASTATIC
     Route: 041
     Dates: start: 19971007, end: 19971010
  3. PINORUBIN [Suspect]
     Indication: LUNG CANCER METASTATIC
     Route: 041
     Dates: start: 19971007, end: 19971008

REACTIONS (3)
  - ENCEPHALOPATHY [None]
  - LUNG CANCER METASTATIC [None]
  - METABOLIC ACIDOSIS [None]
